FAERS Safety Report 4334781-2 (Version None)
Quarter: 2004Q2

REPORT INFORMATION
  Report Type: 
  Country: None (occurrence: None)
  Receive Date: 20040405
  Receipt Date: 20040324
  Transmission Date: 20050107
  Serious: Yes (Life-Threatening, Hospitalization, Other)
  Sender: FDA-Public Use
  Company Number: SP-200001068

PATIENT
  Age: 71 Year
  Sex: Female

DRUGS (7)
  1. REMICADE [Suspect]
     Indication: RHEUMATOID ARTHRITIS
     Dosage: 200 MG, INTRAVENOUS DRIP; SEE IMAGE
     Route: 041
     Dates: start: 20000229, end: 20000229
  2. REMICADE [Suspect]
     Indication: RHEUMATOID ARTHRITIS
     Dosage: 200 MG, INTRAVENOUS DRIP; SEE IMAGE
     Route: 041
     Dates: start: 20000314, end: 20000314
  3. REMICADE [Suspect]
     Indication: RHEUMATOID ARTHRITIS
     Dosage: 200 MG, INTRAVENOUS DRIP; SEE IMAGE
     Route: 041
     Dates: start: 20000411, end: 20000411
  4. PREDNISONE [Concomitant]
  5. METHOTREXATE [Concomitant]
  6. ALENDRONATE (ALENDRONATE SODIUM) [Concomitant]
  7. INDOMETHACIN [Concomitant]

REACTIONS (1)
  - DISSEMINATED TUBERCULOSIS [None]
